FAERS Safety Report 20175989 (Version 1)
Quarter: 2021Q4

REPORT INFORMATION
  Report Type: Spontaneous
  Country: US (occurrence: None)
  Receive Date: 20211210
  Receipt Date: 20211210
  Transmission Date: 20220303
  Serious: Yes (Hospitalization)
  Sender: FDA-Public Use
  Company Number: None

PATIENT
  Age: 47 Year
  Sex: Male
  Weight: 95.7 kg

DRUGS (3)
  1. BARICITINIB [Suspect]
     Active Substance: BARICITINIB
     Indication: COVID-19
     Dosage: FREQUENCY : DAILY;?
     Route: 048
     Dates: start: 20211127, end: 20211203
  2. Dexamethasone, 6mg BID [Concomitant]
     Dates: start: 20211126, end: 20211209
  3. Protonix, 40mg QD [Concomitant]
     Dates: start: 20211203

REACTIONS (3)
  - Pulmonary embolism [None]
  - Peripheral artery occlusion [None]
  - Pneumonia viral [None]

NARRATIVE: CASE EVENT DATE: 20211206
